FAERS Safety Report 13841462 (Version 1)
Quarter: 2017Q3

REPORT INFORMATION
  Report Type: Spontaneous
  Country: US (occurrence: US)
  Receive Date: 20170807
  Receipt Date: 20170807
  Transmission Date: 20171127
  Serious: Yes (Other)
  Sender: FDA-Public Use
  Company Number: US-ALLERGAN-1733332US

PATIENT
  Age: 25 Year
  Sex: Female

DRUGS (2)
  1. NORETHINDRONE UNK [Suspect]
     Active Substance: NORETHINDRONE ACETATE
     Indication: CONTRACEPTION
     Dosage: 0.35 MG, UNK
     Dates: start: 20170717, end: 20170728
  2. LEVETIRACETAM. [Concomitant]
     Active Substance: LEVETIRACETAM

REACTIONS (1)
  - Generalised tonic-clonic seizure [Recovered/Resolved]

NARRATIVE: CASE EVENT DATE: 20170717
